FAERS Safety Report 10122888 (Version 2)
Quarter: 2015Q1

REPORT INFORMATION
  Report Type: Other
  Country: US (occurrence: US)
  Receive Date: 20140427
  Receipt Date: 20150212
  Transmission Date: 20150720
  Serious: Yes (Hospitalization, Other)
  Sender: FDA-Public Use
  Company Number: US-GSKPPD-2014GSK027245

PATIENT
  Age: 81 Year
  Sex: Male

DRUGS (4)
  1. HEPARIN [Concomitant]
     Active Substance: HEPARIN SODIUM
     Route: 058
  2. LISINOPRIL. [Concomitant]
     Active Substance: LISINOPRIL
  3. AVANDIA [Suspect]
     Active Substance: ROSIGLITAZONE MALEATE
     Indication: DIABETES MELLITUS
     Dosage: AVANDIA WAS NOT LISTED AMONG THE PATIENTS RECORDS REVIEWED.
     Route: 048
  4. TERAZOSIN [Concomitant]
     Active Substance: TERAZOSIN\TERAZOSIN HYDROCHLORIDE

REACTIONS (1)
  - Ischaemic stroke [Recovered/Resolved]

NARRATIVE: CASE EVENT DATE: 20100617
